FAERS Safety Report 20822522 (Version 1)
Quarter: 2022Q2

REPORT INFORMATION
  Report Type: Report from Study
  Country: US (occurrence: US)
  Receive Date: 20220512
  Receipt Date: 20220512
  Transmission Date: 20220720
  Serious: Yes (Hospitalization, Other)
  Sender: FDA-Public Use
  Company Number: US-TEVA-605253USA

PATIENT
  Age: 12 Year
  Sex: Female

DRUGS (2)
  1. LAMOTRIGINE [Suspect]
     Active Substance: LAMOTRIGINE
     Indication: Bipolar disorder
     Route: 065
  2. LAMOTRIGINE [Suspect]
     Active Substance: LAMOTRIGINE
     Indication: Drug therapy

REACTIONS (3)
  - Drug-induced liver injury [Recovered/Resolved]
  - Stevens-Johnson syndrome [Recovered/Resolved]
  - Drug reaction with eosinophilia and systemic symptoms [Unknown]
